FAERS Safety Report 14342752 (Version 1)
Quarter: 2018Q1

REPORT INFORMATION
  Report Type: Report from Study
  Country: PT (occurrence: PT)
  Receive Date: 20180102
  Receipt Date: 20180102
  Transmission Date: 20180509
  Serious: Yes (Hospitalization)
  Sender: FDA-Public Use
  Company Number: PT-CELLTRION INC.-2017PT017335

PATIENT

DRUGS (17)
  1. REMSIMA [Suspect]
     Active Substance: INFLIXIMAB
     Dosage: 320 MG
     Route: 042
     Dates: start: 20170711, end: 20170711
  2. FORMOTEROL [Concomitant]
     Active Substance: FORMOTEROL
     Indication: ASTHMA
     Dosage: 4.5 MG, DAILY
     Dates: start: 2015
  3. PARACETAMOL [Concomitant]
     Active Substance: ACETAMINOPHEN
     Indication: PAIN
     Dosage: 1000 MG, TID
     Route: 048
     Dates: start: 20171109, end: 20171110
  4. REMSIMA [Suspect]
     Active Substance: INFLIXIMAB
     Indication: CROHN^S DISEASE
     Dosage: 325 MG
     Route: 042
     Dates: start: 20170505, end: 20170505
  5. CISTITONE FORTE ^L-CYSTINE^ [Concomitant]
     Indication: ALOPECIA
     Dosage: UNK, DAILY
     Route: 048
     Dates: start: 201609
  6. REMSIMA [Suspect]
     Active Substance: INFLIXIMAB
     Dosage: 310 MG
     Route: 042
     Dates: start: 20170908, end: 20170908
  7. AMOXICILLIN PLUS CLAVULANIC ACID [Concomitant]
     Active Substance: AMOXICILLIN\CLAVULANIC ACID
     Indication: INFECTION PROPHYLAXIS
     Dosage: 1.2 G, TID
     Route: 042
     Dates: start: 20171109, end: 20171110
  8. REMSIMA [Suspect]
     Active Substance: INFLIXIMAB
     Dosage: 300 MG
     Route: 042
     Dates: start: 20171103, end: 20171103
  9. ATORVASTATIN [Concomitant]
     Active Substance: ATORVASTATIN
     Indication: DYSLIPIDAEMIA
     Dosage: 20 MG, DAILY
     Route: 048
     Dates: start: 201703
  10. BUDESONIDE. [Concomitant]
     Active Substance: BUDESONIDE
     Indication: ASTHMA
     Dosage: 160 MG, DAILY
     Dates: start: 2015
  11. DEXAMETHASONE. [Concomitant]
     Active Substance: DEXAMETHASONE
     Indication: SHOCK
     Dosage: 10 MG, DAILY
     Route: 042
     Dates: start: 20171109, end: 20171110
  12. XYLOMETAZOLINE [Concomitant]
     Active Substance: XYLOMETAZOLINE
     Indication: NASAL CONGESTION
     Dosage: 1 MG/ML, TID
     Route: 045
     Dates: start: 20171110, end: 20171115
  13. AMOXICILLIN                        /00249602/ [Concomitant]
     Active Substance: AMOXICILLIN
     Indication: INFECTION PROPHYLAXIS
     Dosage: 875 MG, BID
     Route: 048
     Dates: start: 20171110, end: 20171117
  14. PARACETAMOL [Concomitant]
     Active Substance: ACETAMINOPHEN
     Dosage: 1000 MG, PRN
     Route: 048
     Dates: start: 20171110, end: 20171117
  15. CLAVULANIC ACID [Concomitant]
     Active Substance: CLAVULANIC ACID
     Indication: INFECTION PROPHYLAXIS
     Dosage: 125 MG, BID
     Route: 048
     Dates: start: 20171110, end: 20171117
  16. MESALAZINE [Concomitant]
     Active Substance: MESALAMINE
     Indication: INFLAMMATORY BOWEL DISEASE
     Dosage: 4 G, DAILY
     Route: 048
     Dates: start: 201509
  17. FLUTICASONE FUROATE [Concomitant]
     Active Substance: FLUTICASONE FUROATE
     Indication: ASTHMA
     Dosage: 27.5 MG, DAILY
     Route: 045
     Dates: start: 201610

REACTIONS (1)
  - Nasal obstruction [Recovered/Resolved]

NARRATIVE: CASE EVENT DATE: 20170529
